FAERS Safety Report 9401356 (Version 1)
Quarter: 2013Q3

REPORT INFORMATION
  Report Type: Spontaneous
  Country: CN (occurrence: CN)
  Receive Date: 20130715
  Receipt Date: 20130715
  Transmission Date: 20140515
  Serious: Yes (Other)
  Sender: FDA-Public Use
  Company Number: CN-BAXTER-2013BAX026644

PATIENT
  Sex: Female
  Weight: 54 kg

DRUGS (2)
  1. 0.9% SODIUM CHLORIDE INJECTION [Suspect]
     Indication: MEDICATION DILUTION
     Route: 041
     Dates: start: 20120712, end: 20120712
  2. TRASTUZUMAB [Suspect]
     Indication: CHEMOTHERAPY
     Route: 041
     Dates: start: 20120712, end: 20120712

REACTIONS (1)
  - Chills [Recovered/Resolved]
